FAERS Safety Report 4640653-6 (Version None)
Quarter: 2005Q2

REPORT INFORMATION
  Report Type: 
  Country: None (occurrence: None)
  Receive Date: 20050419
  Receipt Date: 20050401
  Transmission Date: 20051028
  Serious: Yes (Hospitalization)
  Sender: FDA-Public Use
  Company Number: 800290

PATIENT
  Age: 76 Year
  Sex: Male
  Weight: 61 kg

DRUGS (9)
  1. EXTRANEAL [Suspect]
     Indication: RENAL FAILURE CHRONIC
     Dosage: 2 L; QD; INTRAPERITONEAL
     Route: 033
     Dates: start: 20040524, end: 20050124
  2. PHYSIOSOL IN PLASTIC CONTAINER [Suspect]
     Indication: RENAL FAILURE CHRONIC
     Dosage: 9.5 L; QD; INTRAPERITONEAL
     Route: 033
     Dates: start: 20040524, end: 20050124
  3. HOMECHOICE [Concomitant]
  4. SOLUPRED [Concomitant]
  5. UNALFA [Concomitant]
  6. LASILIX [Concomitant]
  7. RENAGEL [Concomitant]
  8. DUPHALAC [Concomitant]
  9. AMLOR [Concomitant]

REACTIONS (3)
  - PERITONITIS [None]
  - PHARMACEUTICAL PRODUCT COMPLAINT [None]
  - PSEUDOMONAS INFECTION [None]
